FAERS Safety Report 19963545 (Version 1)
Quarter: 2021Q4

REPORT INFORMATION
  Report Type: Spontaneous
  Country: US (occurrence: US)
  Receive Date: 20211018
  Receipt Date: 20211018
  Transmission Date: 20220303
  Serious: No
  Sender: FDA-Public Use
  Company Number: None

PATIENT
  Age: 43 Year
  Sex: Female
  Weight: 86.18 kg

DRUGS (1)
  1. HUMIRA [Suspect]
     Active Substance: ADALIMUMAB
     Indication: Psoriasis
     Dosage: AS DIRECTED?OTHER STRENGTH: 40/0.4 MG/M;
     Route: 058
     Dates: start: 202102

REACTIONS (2)
  - Illness [None]
  - Therapy interrupted [None]
